FAERS Safety Report 12526264 (Version 2)
Quarter: 2016Q3

REPORT INFORMATION
  Report Type: Spontaneous
  Country: US (occurrence: US)
  Receive Date: 20160705
  Receipt Date: 20160729
  Transmission Date: 20161109
  Serious: No
  Sender: FDA-Public Use
  Company Number: US-PFIZER INC-2016128273

PATIENT
  Age: 42 Year
  Sex: Female
  Weight: 53.52 kg

DRUGS (5)
  1. FASLODEX [Concomitant]
     Active Substance: FULVESTRANT
     Dosage: UNK
     Dates: end: 201605
  2. TAMOXIFEN [Concomitant]
     Active Substance: TAMOXIFEN
     Dosage: 10 MG, 2X/DAY
     Route: 048
  3. FEMARA [Concomitant]
     Active Substance: LETROZOLE
     Dosage: 2.5 MG, 1X/DAY (1 TABLET, DAILY)
  4. IBRANCE [Suspect]
     Active Substance: PALBOCICLIB
     Indication: BREAST CANCER METASTATIC
     Dosage: 125 MG, CYCLIC (EVERY 21 DAYS AND THEN 7 DAYS OFF)
     Dates: start: 201603, end: 201605
  5. XGEVA [Concomitant]
     Active Substance: DENOSUMAB
     Indication: BONE CANCER
     Dosage: UNK, MONTHLY (ONCE IN A MONTH, EVERY 4 WEEKS)

REACTIONS (3)
  - Breast cancer metastatic [Unknown]
  - Nausea [Unknown]
  - Disease progression [Unknown]
